FAERS Safety Report 6663034-2 (Version None)
Quarter: 2010Q2

REPORT INFORMATION
  Report Type: 
  Country: None (occurrence: None)
  Receive Date: 20100401
  Receipt Date: 20100325
  Transmission Date: 20101027
  Serious: Yes (Death, Other)
  Sender: FDA-Public Use
  Company Number: TR-ELI_LILLY_AND_COMPANY-TR201003007971

PATIENT
  Age: 34 Year
  Sex: Female

DRUGS (1)
  1. HUMULIN R [Suspect]
     Indication: DIABETES MELLITUS
     Dosage: 8 U, 3/D
     Route: 058
     Dates: start: 20040101

REACTIONS (2)
  - MYOCARDIAL INFARCTION [None]
  - PANCREATIC DISORDER [None]
